FAERS Safety Report 24771641 (Version 1)
Quarter: 2024Q4

REPORT INFORMATION
  Report Type: Spontaneous
  Country: US (occurrence: US)
  Receive Date: 20241224
  Receipt Date: 20241224
  Transmission Date: 20250115
  Serious: No
  Sender: MERCK
  Company Number: US-009507513-2412USA005207

PATIENT
  Age: 81 Year
  Sex: Male

DRUGS (6)
  1. TEMODAR [Suspect]
     Active Substance: TEMOZOLOMIDE
     Indication: Neoplasm progression
     Dosage: 150 MILLIGRAM/SQ. METER, QD,  FOR SIX 5/28-DAY CYCLES.
     Route: 048
  2. TEMODAR [Suspect]
     Active Substance: TEMOZOLOMIDE
     Indication: Malignant melanoma
  3. IPILIMUMAB [Concomitant]
     Active Substance: IPILIMUMAB
     Indication: Neoplasm progression
     Dosage: 3 MILLIGRAM/KILOGRAM, Q3W,  FOR 4 CYCLES
     Route: 042
  4. IPILIMUMAB [Concomitant]
     Active Substance: IPILIMUMAB
     Indication: Malignant melanoma
  5. NIVOLUMAB [Concomitant]
     Active Substance: NIVOLUMAB
     Indication: Neoplasm progression
     Dosage: 1 MILLIGRAM/KILOGRAM, Q3W, FOR 4 CYCLES
     Route: 042
  6. NIVOLUMAB [Concomitant]
     Active Substance: NIVOLUMAB
     Indication: Malignant melanoma

REACTIONS (1)
  - Off label use [Unknown]

NARRATIVE: CASE EVENT DATE: 20211001
